FAERS Safety Report 5005667-5 (Version None)
Quarter: 2006Q2

REPORT INFORMATION
  Report Type: 
  Country: None (occurrence: None)
  Receive Date: 20060515
  Receipt Date: 20060504
  Transmission Date: 20061013
  Serious: Yes (Other)
  Sender: FDA-Public Use
  Company Number: 2006-05-0319

PATIENT
  Age: 45 Year
  Sex: Female

DRUGS (1)
  1. PEG-INTRON [Suspect]

REACTIONS (2)
  - ANAEMIA [None]
  - ASCITES [None]
